FAERS Safety Report 16300418 (Version 3)
Quarter: 2020Q2

REPORT INFORMATION
  Report Type: Spontaneous
  Country: DE (occurrence: DE)
  Receive Date: 20190510
  Receipt Date: 20200529
  Transmission Date: 20200713
  Serious: Yes (Life-Threatening, Other)
  Sender: FDA-Public Use
  Company Number: DE-SHILPA MEDICARE LIMITED-SML-DE-2019-00112

PATIENT
  Age: 61 Year
  Sex: Male

DRUGS (16)
  1. IMATINIB, UNKNOWN [Suspect]
     Active Substance: IMATINIB
     Dosage: DOSE REDUCED
     Route: 065
     Dates: start: 2009
  2. IMATINIB, UNKNOWN [Suspect]
     Active Substance: IMATINIB
     Dosage: DOSE INCREASED
     Route: 065
     Dates: start: 2013
  3. IMATINIB, UNKNOWN [Suspect]
     Active Substance: IMATINIB
     Indication: CHRONIC MYELOID LEUKAEMIA
     Route: 065
     Dates: start: 2004
  4. IMATINIB, UNKNOWN [Suspect]
     Active Substance: IMATINIB
     Dosage: DOSE INCREASED
     Route: 065
     Dates: start: 2007
  5. IMATINIB, UNKNOWN [Suspect]
     Active Substance: IMATINIB
     Dosage: DOSE INCREASED
     Route: 065
  6. IMATINIB, UNKNOWN [Suspect]
     Active Substance: IMATINIB
     Dosage: DOSE INCREASED
     Route: 065
  7. FLUOROURACIL. [Suspect]
     Active Substance: FLUOROURACIL
     Indication: METASTASES TO LIVER
  8. IMATINIB, UNKNOWN [Suspect]
     Active Substance: IMATINIB
     Dosage: DOSE REDUCED
     Route: 065
  9. IMATINIB, UNKNOWN [Suspect]
     Active Substance: IMATINIB
     Dosage: DOSE REDUCED
     Route: 065
     Dates: start: 2009
  10. IMATINIB, UNKNOWN [Suspect]
     Active Substance: IMATINIB
     Dosage: DOSE REDUCED
     Route: 065
  11. IMATINIB, UNKNOWN [Suspect]
     Active Substance: IMATINIB
     Dosage: DOSE INCREASED
     Route: 065
     Dates: start: 2007
  12. FOLINIC ACID [Suspect]
     Active Substance: LEUCOVORIN
     Indication: RECTOSIGMOID CANCER
     Route: 041
     Dates: start: 2009
  13. IMATINIB, UNKNOWN [Suspect]
     Active Substance: IMATINIB
     Dosage: DOSE INCREASED
     Route: 065
     Dates: start: 2013
  14. FLUOROURACIL. [Suspect]
     Active Substance: FLUOROURACIL
     Indication: RECTOSIGMOID CANCER
     Route: 040
     Dates: start: 2009
  15. IMATINIB, UNKNOWN [Suspect]
     Active Substance: IMATINIB
     Indication: CHRONIC MYELOID LEUKAEMIA
     Route: 065
     Dates: start: 2004
  16. OXALIPLATIN. [Suspect]
     Active Substance: OXALIPLATIN
     Indication: RECTOSIGMOID CANCER
     Route: 041
     Dates: start: 2009

REACTIONS (5)
  - Colon cancer [Unknown]
  - Rectosigmoid cancer [Recovered/Resolved]
  - B-cell small lymphocytic lymphoma [Recovered/Resolved]
  - Prostate cancer [Recovered/Resolved]
  - Metastases to liver [Recovering/Resolving]

NARRATIVE: CASE EVENT DATE: 2007
